FAERS Safety Report 4751230-0 (Version None)
Quarter: 2005Q3

REPORT INFORMATION
  Report Type: 
  Country: None (occurrence: None)
  Receive Date: 20050822
  Receipt Date: 20050811
  Transmission Date: 20060218
  Serious: Yes (Disabling)
  Sender: FDA-Public Use
  Company Number: A0528987A

PATIENT
  Age: 39 Year
  Sex: Female

DRUGS (4)
  1. LOTRONEX [Suspect]
     Indication: IRRITABLE BOWEL SYNDROME
     Dosage: 1 MG/PER DAY/ORAL
     Route: 048
     Dates: start: 20040615, end: 20040712
  2. OMEPRAZOLE [Concomitant]
  3. MICROGESTIN FE 1/20 [Concomitant]
  4. FIBER [Concomitant]

REACTIONS (8)
  - ABDOMINAL PAIN UPPER [None]
  - HAEMOGLOBIN DECREASED [None]
  - HEPATITIS ACUTE [None]
  - HEPATOMEGALY [None]
  - MALAISE [None]
  - NAUSEA [None]
  - PLATELET COUNT INCREASED [None]
  - WHITE BLOOD CELL COUNT DECREASED [None]
